FAERS Safety Report 5277511-2 (Version None)
Quarter: 2007Q1

REPORT INFORMATION
  Report Type: 
  Country: None (occurrence: None)
  Receive Date: 20070327
  Receipt Date: 20070316
  Transmission Date: 20070707
  Serious: Yes (Other)
  Sender: FDA-Public Use
  Company Number: NZ-ROCHE-483168

PATIENT
  Age: 44 Year
  Sex: Male
  Weight: 99 kg

DRUGS (2)
  1. COPEGUS [Suspect]
     Route: 048
     Dates: start: 20061014
  2. COPEGUS [Suspect]
     Dosage: DOSE REDUCED.
     Route: 048

REACTIONS (1)
  - HAEMOLYTIC ANAEMIA [None]
